FAERS Safety Report 18042699 (Version 1)
Quarter: 2020Q3

REPORT INFORMATION
  Report Type: Spontaneous
  Country: US (occurrence: US)
  Receive Date: 20200717
  Receipt Date: 20200717
  Transmission Date: 20201103
  Serious: Yes (Other)
  Sender: FDA-Public Use
  Company Number: None

PATIENT
  Age: 15 Year
  Sex: Male
  Weight: 57.2 kg

DRUGS (2)
  1. DEXMETHYLPHENIDATE HCL ER 25 MG [Suspect]
     Active Substance: DEXMETHYLPHENIDATE HYDROCHLORIDE
     Indication: ATTENTION DEFICIT HYPERACTIVITY DISORDER
     Route: 048
     Dates: start: 20170215, end: 20170501
  2. DEXMETHYLPHENIDATE 2.5MG [Suspect]
     Active Substance: DEXMETHYLPHENIDATE HYDROCHLORIDE
     Indication: ATTENTION DEFICIT HYPERACTIVITY DISORDER
     Route: 048
     Dates: start: 20170215, end: 20170501

REACTIONS (3)
  - Drug ineffective [None]
  - Vision blurred [None]
  - Behaviour disorder [None]

NARRATIVE: CASE EVENT DATE: 201702
